FAERS Safety Report 18549610 (Version 2)
Quarter: 2020Q4

REPORT INFORMATION
  Report Type: Spontaneous
  Country: PL (occurrence: PL)
  Receive Date: 20201126
  Receipt Date: 20201201
  Transmission Date: 20210114
  Serious: Yes (Hospitalization, Other)
  Sender: FDA-Public Use
  Company Number: PL-AUROBINDO-AUR-APL-2020-058785

PATIENT
  Age: 28 Year
  Sex: Female
  Weight: 104 kg

DRUGS (2)
  1. ARIPIPRAZOLE. [Suspect]
     Active Substance: ARIPIPRAZOLE
     Indication: SCHIZOPHRENIA
     Dosage: 15 MILLIGRAM, ONCE A DAY (DOSE REDUCTION TO 7.5 MG)
     Route: 065
  2. OLANZAPINE ORALDISPERSIBLE TABLET [Suspect]
     Active Substance: OLANZAPINE
     Indication: SCHIZOPHRENIA
     Dosage: 10 MILLIGRAM, ONCE A DAY
     Route: 065

REACTIONS (5)
  - Obesity [Unknown]
  - Premature baby [Unknown]
  - Pre-eclampsia [Unknown]
  - Anogenital warts [Unknown]
  - Metabolic syndrome [Unknown]
